FAERS Safety Report 7889993-8 (Version None)
Quarter: 2011Q4

REPORT INFORMATION
  Report Type: 
  Country: None (occurrence: None)
  Receive Date: 20111103
  Receipt Date: 20111020
  Transmission Date: 20120403
  Serious: Yes (Hospitalization, Other)
  Sender: FDA-Public Use
  Company Number: PHHY2011JP93274

PATIENT
  Sex: Male

DRUGS (13)
  1. SIMULECT [Suspect]
     Dosage: 20 MG, UNK
     Dates: start: 20100216, end: 20100216
  2. NEORAL [Suspect]
     Dosage: 250 MG
  3. PREDNISOLONE ACETATE [Concomitant]
     Indication: RENAL TRANSPLANT
     Dosage: 50 MG
     Route: 042
     Dates: start: 20100216, end: 20100216
  4. SANDIMMUNE [Concomitant]
     Indication: RENAL TRANSPLANT
     Dosage: 180 MG
     Dates: start: 20100216, end: 20100216
  5. NEORAL [Suspect]
     Dosage: 400 MG
     Dates: start: 20100217, end: 20100303
  6. MYCOPHENOLATE MOFETIL (CELLCEPT) [Concomitant]
     Indication: RENAL TRANSPLANT
     Dosage: 100 MG
     Route: 048
     Dates: start: 20100203, end: 20100215
  7. SIMULECT [Suspect]
     Dosage: 20 MG
     Dates: start: 20100220, end: 20100220
  8. NEORAL [Suspect]
     Indication: RENAL TRANSPLANT
     Dosage: 400 MG
     Dates: start: 20100211, end: 20100215
  9. MIZORIBINE [Suspect]
     Dosage: 200 MG
     Route: 048
     Dates: start: 20100217
  10. PREDNISOLONE [Suspect]
     Indication: RENAL TRANSPLANT
     Dosage: 10 MG
     Route: 048
     Dates: start: 20100203, end: 20100215
  11. PREDNISOLONE [Suspect]
     Dosage: 5 MG
     Route: 048
     Dates: start: 20100217
  12. RITUXAN [Concomitant]
     Dosage: 200 MG
     Route: 042
     Dates: start: 20100203, end: 20100210
  13. PROGRAF [Concomitant]
     Dosage: 8 MG
     Route: 048
     Dates: start: 20100304

REACTIONS (3)
  - BLOOD CREATININE INCREASED [None]
  - NEPHROPATHY TOXIC [None]
  - TOXICITY TO VARIOUS AGENTS [None]
